FAERS Safety Report 9254323 (Version 1)
Quarter: 2013Q2

REPORT INFORMATION
  Report Type: Spontaneous
  Country: US (occurrence: None)
  Receive Date: 20130422
  Receipt Date: 20130422
  Transmission Date: 20140414
  Serious: Yes (Hospitalization, Other)
  Sender: FDA-Public Use
  Company Number: AUR-APL-2013-03170

PATIENT
  Age: 85 Year
  Sex: Female

DRUGS (3)
  1. LISINOPRIL (LISINOPRIL) [Suspect]
     Indication: HYPERTENSION
     Dosage: 1 D
  2. COUMADIN (WARFARIN SODIUM) [Concomitant]
  3. LANOXIN (DIGOXIN) [Concomitant]

REACTIONS (3)
  - Asthma [None]
  - Condition aggravated [None]
  - Angioedema [None]
